FAERS Safety Report 5174384-3 (Version None)
Quarter: 2006Q4

REPORT INFORMATION
  Report Type: 
  Country: None (occurrence: None)
  Receive Date: 20061214
  Receipt Date: 20061031
  Transmission Date: 20070319
  Serious: Yes (Hospitalization)
  Sender: FDA-Public Use
  Company Number: GB-SANOFI-SYNTHELABO-F01200602232

PATIENT
  Sex: Male
  Weight: 73.4 kg

DRUGS (4)
  1. GRANISETRON [Concomitant]
     Route: 042
     Dates: start: 20061012, end: 20061012
  2. OXALIPLATIN [Suspect]
     Indication: COLORECTAL CANCER METASTATIC
     Route: 041
     Dates: start: 20061012, end: 20061012
  3. CAPECITABINE [Suspect]
     Dosage: DAYS 1-14 Q3W
     Route: 048
     Dates: start: 20061012
  4. DEXAMETHASONE [Concomitant]
     Route: 042
     Dates: start: 20061012, end: 20061012

REACTIONS (3)
  - DIARRHOEA [None]
  - HYPERSENSITIVITY [None]
  - VOMITING [None]
